FAERS Safety Report 7927492-5 (Version None)
Quarter: 2011Q4

REPORT INFORMATION
  Report Type: 
  Country: None (occurrence: None)
  Receive Date: 20111118
  Receipt Date: 20111111
  Transmission Date: 20120403
  Serious: Yes (Other)
  Sender: FDA-Public Use
  Company Number: US-AMGEN-USASP2011059736

PATIENT
  Age: 54 Year
  Sex: Male

DRUGS (2)
  1. ENBREL [Suspect]
     Indication: PSORIASIS
     Dosage: 50 MG, 2 TIMES/WK
     Dates: start: 20100101, end: 20111024
  2. DECONGESTANT                       /00070002/ [Concomitant]
     Dosage: UNK

REACTIONS (15)
  - CHEST DISCOMFORT [None]
  - PERIPHERAL COLDNESS [None]
  - DYSPHAGIA [None]
  - PARANASAL SINUS HYPERSECRETION [None]
  - HEADACHE [None]
  - HYPERHIDROSIS [None]
  - BONE PAIN [None]
  - DIVERTICULITIS [None]
  - EAR INFECTION [None]
  - PALPITATIONS [None]
  - HOT FLUSH [None]
  - EYELID PTOSIS [None]
  - PSORIASIS [None]
  - RASH [None]
  - SCLERAL DISCOLOURATION [None]
